FAERS Safety Report 5743821-5 (Version None)
Quarter: 2008Q2

REPORT INFORMATION
  Report Type: 
  Country: None (occurrence: None)
  Receive Date: 20080519
  Receipt Date: 20080519
  Transmission Date: 20081010
  Serious: Yes (Disabling)
  Sender: FDA-Public Use
  Company Number: None

PATIENT
  Sex: Female
  Weight: 64.8644 kg

DRUGS (2)
  1. LYRICA [Suspect]
     Indication: CARPAL TUNNEL SYNDROME
     Dosage: 3 X DAY   PO
     Route: 048
     Dates: start: 20080210, end: 20080228
  2. LYRICA [Suspect]
     Indication: NEURALGIA
     Dosage: 3 X DAY   PO
     Route: 048
     Dates: start: 20080210, end: 20080228

REACTIONS (6)
  - COUGH [None]
  - DYSPNOEA [None]
  - FACE OEDEMA [None]
  - MOOD ALTERED [None]
  - OEDEMA PERIPHERAL [None]
  - WEIGHT INCREASED [None]
